FAERS Safety Report 16057052 (Version 1)
Quarter: 2019Q2

REPORT INFORMATION
  Report Type: Spontaneous
  Country: US (occurrence: US)
  Receive Date: 20190311
  Receipt Date: 20190311
  Transmission Date: 20190711
  Serious: No
  Sender: FDA-Public Use
  Company Number: None

PATIENT
  Age: 63 Year
  Sex: Female
  Weight: 63 kg

DRUGS (1)
  1. SERTRALINE [Suspect]
     Active Substance: SERTRALINE HYDROCHLORIDE
     Indication: ANTIDEPRESSANT THERAPY
     Dosage: ?          QUANTITY:1 TABLET(S);?
     Route: 048
     Dates: start: 20181101, end: 20190301

REACTIONS (10)
  - Confusional state [None]
  - Loss of consciousness [None]
  - Headache [None]
  - Fatigue [None]
  - Dizziness [None]
  - Feeling jittery [None]
  - Breast enlargement [None]
  - Nightmare [None]
  - Product substitution issue [None]
  - Somnambulism [None]

NARRATIVE: CASE EVENT DATE: 20181115
